FAERS Safety Report 19022174 (Version 1)
Quarter: 2021Q1

REPORT INFORMATION
  Report Type: Spontaneous
  Country: US (occurrence: US)
  Receive Date: 20210317
  Receipt Date: 20210317
  Transmission Date: 20210420
  Serious: No
  Sender: FDA-Public Use
  Company Number: US-BRISTOL-MYERS SQUIBB COMPANY-BMS-2021-025424

PATIENT
  Sex: Male
  Weight: 92.52 kg

DRUGS (1)
  1. COUMADIN [Suspect]
     Active Substance: WARFARIN SODIUM
     Indication: THROMBOSIS PROPHYLAXIS
     Dosage: 5MG FIVE DAYS A WEEK; 7.5MG TWO DAYS A WEEK,5MG FOUR DAYS A WEEK; 10MG THREE DAYS A WEEK
     Route: 048
     Dates: start: 2010

REACTIONS (2)
  - International normalised ratio abnormal [Unknown]
  - Chondropathy [Unknown]
